FAERS Safety Report 5228026-9 (Version None)
Quarter: 2007Q1

REPORT INFORMATION
  Report Type: 
  Country: None (occurrence: None)
  Receive Date: 20061205
  Receipt Date: 20061003
  Transmission Date: 20070707
  Serious: Yes (Other)
  Sender: FDA-Public Use
  Company Number: PHEH2006US12453

PATIENT
  Age: 36 Year
  Sex: Female

DRUGS (7)
  1. EXJADE [Suspect]
     Indication: IRON OVERLOAD
     Dosage: 1000 MG, QD, ORAL
     Route: 048
     Dates: start: 20060916
  2. CASPOFUNGIN (CASPOGUNGIN) [Concomitant]
  3. MORPHINE [Concomitant]
  4. DURAGESIC-100 [Concomitant]
  5. K-DUR 10 [Concomitant]
  6. ALBUMIN (HUMAN) [Concomitant]
  7. LASIX [Concomitant]

REACTIONS (1)
  - PITTING OEDEMA [None]
